FAERS Safety Report 5851811-7 (Version None)
Quarter: 2008Q3

REPORT INFORMATION
  Report Type: 
  Country: None (occurrence: None)
  Receive Date: 20080812
  Receipt Date: 20071109
  Transmission Date: 20090109
  Serious: Yes (Hospitalization)
  Sender: FDA-Public Use
  Company Number: 07H-163-0313465-00

PATIENT
  Age: 1 Year
  Sex: Female

DRUGS (2)
  1. MIDAZOLAM HYDROCHLORIDE [Suspect]
     Indication: SEDATION
     Dates: start: 20070926, end: 20070926
  2. NEMBUTAL [Suspect]
     Indication: SEDATION
     Dates: start: 20070926, end: 20070926

REACTIONS (1)
  - BRADYCARDIA [None]
